FAERS Safety Report 4394829-6 (Version None)
Quarter: 2004Q3

REPORT INFORMATION
  Report Type: 
  Country: None (occurrence: None)
  Receive Date: 20040707
  Receipt Date: 20040621
  Transmission Date: 20050211
  Serious: Yes (Hospitalization)
  Sender: FDA-Public Use
  Company Number: 2004CG01197

PATIENT
  Age: 1 Day
  Sex: Male
  Weight: 3.1 kg

DRUGS (6)
  1. NAROPIN [Suspect]
     Indication: EPIDURAL ANAESTHESIA
     Dates: start: 20040507, end: 20040507
  2. BRISTOPEN [Suspect]
     Indication: STAPHYLOCOCCAL INFECTION
     Dates: start: 20040508, end: 20040509
  3. VANCOMYCIN [Suspect]
     Indication: STAPHYLOCOCCAL INFECTION
     Dates: start: 20040508, end: 20040509
  4. GENTAMYCIN SULFATE [Suspect]
     Indication: STAPHYLOCOCCAL INFECTION
     Dates: start: 20040508, end: 20040509
  5. SYNTOCINON [Suspect]
     Dates: start: 20040508, end: 20040508
  6. EPHEDRINE [Suspect]
     Dates: start: 20040507, end: 20040507

REACTIONS (7)
  - DRUG EXPOSURE DURING PREGNANCY [None]
  - LEUKOPENIA NEONATAL [None]
  - MALIGNANT HISTIOCYTOSIS [None]
  - NEONATAL DISORDER [None]
  - NEUTROPENIA NEONATAL [None]
  - SKIN ULCER [None]
  - STAPHYLOCOCCAL INFECTION [None]
